FAERS Safety Report 6875304-3 (Version None)
Quarter: 2010Q3

REPORT INFORMATION
  Report Type: 
  Country: None (occurrence: None)
  Receive Date: 20100727
  Receipt Date: 20040616
  Transmission Date: 20110219
  Serious: No
  Sender: FDA-Public Use
  Company Number: US-PFIZER INC-2004219769US

PATIENT
  Sex: Male

DRUGS (3)
  1. CELEBREX [Suspect]
     Indication: HEADACHE
     Dates: start: 20040615, end: 20040615
  2. IMITREX [Concomitant]
  3. ANTIBIOTICS [Concomitant]

REACTIONS (2)
  - DIZZINESS [None]
  - HEADACHE [None]
